FAERS Safety Report 11643774 (Version 1)
Quarter: 2015Q4

REPORT INFORMATION
  Report Type: Spontaneous
  Country: US (occurrence: None)
  Receive Date: 20151019
  Receipt Date: 20151019
  Transmission Date: 20160304
  Serious: Yes (Disabling)
  Sender: FDA-Public Use
  Company Number: None

PATIENT
  Age: 81 Year
  Sex: Female
  Weight: 66.68 kg

DRUGS (7)
  1. DILTIAZEM HYDROCHLORIDE EXTENDED RELEASE [Concomitant]
     Active Substance: DILTIAZEM HYDROCHLORIDE
  2. LATANOPROST. [Concomitant]
     Active Substance: LATANOPROST
  3. CALCIUM [Concomitant]
     Active Substance: CALCIUM
  4. BACITRACIN. [Concomitant]
     Active Substance: BACITRACIN
  5. OCUVITE [Concomitant]
     Active Substance: VITAMINS
  6. PANTOPRAZOLE 40MG [Suspect]
     Active Substance: PANTOPRAZOLE SODIUM
     Indication: GASTRITIS
     Route: 048
  7. VALSARTAN. [Concomitant]
     Active Substance: VALSARTAN

REACTIONS (5)
  - Asthenia [None]
  - Dyspepsia [None]
  - Dyspnoea [None]
  - Nausea [None]
  - Gastric disorder [None]

NARRATIVE: CASE EVENT DATE: 20150924
